FAERS Safety Report 21599609 (Version 1)
Quarter: 2022Q4

REPORT INFORMATION
  Report Type: Spontaneous
  Country: US (occurrence: None)
  Receive Date: 20221115
  Receipt Date: 20221115
  Transmission Date: 20230113
  Serious: No
  Sender: FDA-Public Use
  Company Number: None

PATIENT
  Sex: Male

DRUGS (1)
  1. HUMIRA [Suspect]
     Active Substance: ADALIMUMAB
     Indication: Rheumatoid arthritis
     Dosage: OTHER QUANTITY : 40MG/0.4ML ;?OTHER FREQUENCY : EVERY 14 DAYS;?
     Route: 058
     Dates: start: 20211204

REACTIONS (3)
  - Fatigue [None]
  - Back pain [None]
  - Drug ineffective [None]
